FAERS Safety Report 6853313-8 (Version None)
Quarter: 2010Q3

REPORT INFORMATION
  Report Type: 
  Country: None (occurrence: None)
  Receive Date: 20100717
  Receipt Date: 20071204
  Transmission Date: 20110219
  Serious: No
  Sender: FDA-Public Use
  Company Number: US-PFIZER INC-2007103828

PATIENT
  Sex: Female

DRUGS (3)
  1. CHANTIX [Suspect]
     Indication: SMOKING CESSATION THERAPY
     Dates: start: 20071101
  2. HYDROCHLOROTHIAZIDE [Concomitant]
     Indication: FLUID RETENTION
  3. CRESTOR [Concomitant]
     Indication: BLOOD CHOLESTEROL ABNORMAL

REACTIONS (4)
  - DIARRHOEA [None]
  - DYSGEUSIA [None]
  - FLATULENCE [None]
  - NAUSEA [None]
